FAERS Safety Report 13777800 (Version 4)
Quarter: 2018Q3

REPORT INFORMATION
  Report Type: Report from Study
  Country: US (occurrence: US)
  Receive Date: 20170721
  Receipt Date: 20180707
  Transmission Date: 20181010
  Serious: Yes (Death, Life-Threatening, Hospitalization, Other)
  Sender: FDA-Public Use
  Company Number: US-AMGEN-USACT2017110373

PATIENT
  Age: 18 Year
  Sex: Male
  Weight: 112.2 kg

DRUGS (22)
  1. PREDNISONE. [Concomitant]
     Active Substance: PREDNISONE
     Dosage: UNK
     Dates: start: 201211, end: 201706
  2. METFORMIN [Concomitant]
     Active Substance: METFORMIN HYDROCHLORIDE
     Indication: TYPE 2 DIABETES MELLITUS
  3. DEXAMETHASONE. [Concomitant]
     Active Substance: DEXAMETHASONE
     Dosage: 3 MG/M2, BID
     Dates: start: 201211
  4. METHOTREXATE. [Concomitant]
     Active Substance: METHOTREXATE
     Dosage: 15 MG, UNK
     Route: 042
     Dates: start: 20170627, end: 20170627
  5. PEGASPARGASE [Concomitant]
     Active Substance: PEGASPARGASE
     Dosage: 2500 IU/M2, UNK
     Route: 042
  6. CYCLOPHOSPHAMIDE. [Concomitant]
     Active Substance: CYCLOPHOSPHAMIDE
     Dosage: 440 MG/M2, UNK
     Route: 042
     Dates: start: 201211, end: 201706
  7. HYDROCORTISONE. [Concomitant]
     Active Substance: HYDROCORTISONE
     Dosage: 8?15 MG, UNK
     Dates: start: 201211, end: 201706
  8. CYTARABINE. [Concomitant]
     Active Substance: CYTARABINE
     Dosage: 16?30 MG, UNK
     Route: 037
     Dates: start: 201211, end: 201706
  9. MERCAPTOPURINE. [Concomitant]
     Active Substance: MERCAPTOPURINE
     Dosage: 175 MG, UNK
     Route: 048
     Dates: start: 20170627, end: 20170627
  10. ETOPOSIDE. [Concomitant]
     Active Substance: ETOPOSIDE
     Dosage: 100 MG/M2, UNK
     Route: 042
     Dates: start: 201211, end: 201706
  11. MITOXANTRONE [Concomitant]
     Active Substance: MITOXANTRONE HYDROCHLORIDE
     Dosage: UNK
     Dates: start: 201211, end: 201706
  12. BLINATUMOMAB [Suspect]
     Active Substance: BLINATUMOMAB
     Indication: B PRECURSOR TYPE ACUTE LEUKAEMIA
     Dosage: UNK
     Route: 065
     Dates: start: 20160404, end: 20170328
  13. MERCAPTOPURINE. [Concomitant]
     Active Substance: MERCAPTOPURINE
     Dosage: 75 MG/M2, UNK
     Route: 048
     Dates: start: 201211
  14. THIOGUANINE [Concomitant]
     Active Substance: THIOGUANINE
     Dosage: 40 MG/M2, QD
     Route: 048
     Dates: start: 201211, end: 201706
  15. ALLOPURINOL. [Concomitant]
     Active Substance: ALLOPURINOL
  16. DEXAMETHASONE. [Concomitant]
     Active Substance: DEXAMETHASONE
     Dosage: 14 MG, UNK
     Dates: start: 20170627, end: 20170628
  17. VINCRISTINE [Concomitant]
     Active Substance: VINCRISTINE
     Dosage: 1.5 MG/M2, UNK
     Route: 042
     Dates: start: 201211
  18. VINCRISTINE [Concomitant]
     Active Substance: VINCRISTINE
     Dosage: 2 MG, UNK
     Route: 042
     Dates: start: 20170627, end: 20170627
  19. METHOTREXATE. [Concomitant]
     Active Substance: METHOTREXATE
     Dosage: 1000 MG/M2, UNK
     Route: 042
     Dates: start: 201211
  20. DOXORUBICIN HYDROCHLORIDE. [Concomitant]
     Active Substance: DOXORUBICIN HYDROCHLORIDE
     Dosage: UNK
     Dates: start: 201211, end: 201706
  21. DAUNORUBICIN [Concomitant]
     Active Substance: DAUNORUBICIN
     Dosage: UNK
     Dates: start: 201211, end: 201706
  22. PEG?L?ASPARAGINASE [Concomitant]
     Active Substance: PEGASPARGASE
     Dosage: UNK
     Dates: start: 201211, end: 201706

REACTIONS (2)
  - Acute respiratory distress syndrome [Fatal]
  - Acute myeloid leukaemia [Fatal]

NARRATIVE: CASE EVENT DATE: 20170629
